FAERS Safety Report 22068037 (Version 2)
Quarter: 2023Q1

REPORT INFORMATION
  Report Type: Spontaneous
  Country: US (occurrence: US)
  Receive Date: 20230307
  Receipt Date: 20230331
  Transmission Date: 20230417
  Serious: Yes (Other)
  Sender: FDA-Public Use
  Company Number: US-MLMSERVICE-20221122-3928973-1

PATIENT
  Age: 58 Year
  Sex: Male

DRUGS (6)
  1. CLOBETASOL PROPIONATE [Suspect]
     Active Substance: CLOBETASOL PROPIONATE
     Indication: Alopecia areata
     Dosage: UNK, ONCE A DAY (IN THE MORNING)
     Route: 061
  2. MINOXIDIL [Suspect]
     Active Substance: MINOXIDIL
     Indication: Alopecia areata
     Dosage: ONCE A DAY (1 MONTHS)
     Route: 061
  3. MINOXIDIL [Suspect]
     Active Substance: MINOXIDIL
     Dosage: 2.5 MILLIGRAM, ONCE A DAY
     Route: 065
  4. MINOXIDIL [Suspect]
     Active Substance: MINOXIDIL
     Dosage: 5 MILLIGRAM, TWO TIMES A DAY
     Route: 048
  5. TOFACITINIB [Concomitant]
     Active Substance: TOFACITINIB
     Indication: Alopecia areata
     Dosage: 11 MILLIGRAM, ONCE A DAY
     Route: 065
  6. FINASTERIDE [Concomitant]
     Active Substance: FINASTERIDE
     Indication: Alopecia areata
     Dosage: 1 MILLIGRAM, ONCE A DAY
     Route: 065

REACTIONS (3)
  - Dermatitis [Unknown]
  - Drug ineffective [Unknown]
  - Off label use [Unknown]
